FAERS Safety Report 19467286 (Version 1)
Quarter: 2021Q2

REPORT INFORMATION
  Report Type: Spontaneous
  Country: US (occurrence: US)
  Receive Date: 20210625
  Receipt Date: 20210625
  Transmission Date: 20210717
  Serious: Yes (Hospitalization)
  Sender: FDA-Public Use
  Company Number: None

PATIENT
  Sex: Male

DRUGS (1)
  1. EVEROLIMUS 2.5MG PAR [Suspect]
     Active Substance: EVEROLIMUS
     Indication: RENAL CANCER
     Dosage: ? ON HOLD
     Route: 048
     Dates: start: 20210408

REACTIONS (1)
  - Gastrointestinal haemorrhage [None]
